FAERS Safety Report 7594076-0 (Version None)
Quarter: 2011Q3

REPORT INFORMATION
  Report Type: 
  Country: None (occurrence: None)
  Receive Date: 20110706
  Receipt Date: 20110413
  Transmission Date: 20111222
  Serious: Yes (Other)
  Sender: FDA-Public Use
  Company Number: US-BAYER-200829316NA

PATIENT
  Sex: Male
  Weight: 86 kg

DRUGS (22)
  1. MAGNEVIST [Suspect]
     Indication: NUCLEAR MAGNETIC RESONANCE IMAGING
     Dosage: 19 ML, ONCE
     Route: 042
     Dates: start: 20080721, end: 20080721
  2. METOPROLOL TARTRATE [Concomitant]
     Dosage: UNK
     Dates: start: 20080101
  3. METFORMIN HCL [Concomitant]
  4. OPTIMARK [Suspect]
     Indication: NUCLEAR MAGNETIC RESONANCE IMAGING
  5. MULTIHANCE [Suspect]
     Indication: NUCLEAR MAGNETIC RESONANCE IMAGING
  6. SILODOSIN [Concomitant]
  7. AMIODARONE HCL [Concomitant]
     Dosage: UNK
     Dates: start: 19980101
  8. COREG [Concomitant]
     Dosage: UNK
     Dates: start: 19980101
  9. GADOLINIUM IN UNSPECIFIED DRUG [Suspect]
     Indication: DIZZINESS
  10. LYRICA [Concomitant]
     Dosage: UNK
     Dates: start: 20080101
  11. MAGNEVIST [Suspect]
  12. NORVASC [Concomitant]
     Dosage: UNK
     Dates: start: 19980101, end: 20070101
  13. MAGNEVIST [Suspect]
     Indication: ASTHENIA
  14. SIMVASTATIN [Concomitant]
  15. GADOLINIUM IN UNSPECIFIED DRUG [Suspect]
     Indication: NUCLEAR MAGNETIC RESONANCE IMAGING
     Dosage: UNK UNK, ONCE
     Dates: start: 20050521, end: 20050521
  16. BENICAR [Concomitant]
     Dosage: UNK
     Dates: start: 19980101
  17. OMNISCAN [Suspect]
     Indication: NUCLEAR MAGNETIC RESONANCE IMAGING
     Dosage: UNK, ONCE
     Dates: start: 20050811, end: 20050811
  18. PROHANCE [Suspect]
     Indication: NUCLEAR MAGNETIC RESONANCE IMAGING
  19. WARFARIN SODIUM [Concomitant]
     Dosage: UNK
     Dates: start: 19980101
  20. OMEPRAZOLE [Concomitant]
  21. ACTONEL [Concomitant]
  22. TRIAMTEREN HCT [Concomitant]

REACTIONS (12)
  - PAIN [None]
  - INJURY [None]
  - ANXIETY [None]
  - EMOTIONAL DISTRESS [None]
  - RENAL DISORDER [None]
  - NEPHROGENIC SYSTEMIC FIBROSIS [None]
  - GENERAL PHYSICAL HEALTH DETERIORATION [None]
  - MOBILITY DECREASED [None]
  - RASH [None]
  - DISCOMFORT [None]
  - SKIN DISORDER [None]
  - MAJOR DEPRESSION [None]
